FAERS Safety Report 6293216-3 (Version None)
Quarter: 2009Q3

REPORT INFORMATION
  Report Type: 
  Country: None (occurrence: None)
  Receive Date: 20090731
  Receipt Date: 20090721
  Transmission Date: 20100115
  Serious: Yes (Other)
  Sender: FDA-Public Use
  Company Number: DE-WYE-H10365109

PATIENT

DRUGS (3)
  1. PANTOPRAZOLE SODIUM [Suspect]
     Dosage: 40 MG, UNSPECIFIED FREQUENCY
     Route: 048
  2. TACROLIMUS [Interacting]
     Indication: IMMUNOSUPPRESSANT DRUG THERAPY
     Dosage: ADJUSTED TO REACH TARGET TROUGH LEVELS OF 5-14 NG/ML ACCORDING TO POINT OF TIME AFTER TRANSPLANT
     Route: 048
  3. MYCOPHENOLATE MOFETIL [Interacting]
     Indication: IMMUNOSUPPRESSANT DRUG THERAPY
     Route: 048

REACTIONS (3)
  - CORONARY ARTERY DISEASE [None]
  - DRUG INTERACTION [None]
  - TRANSPLANT REJECTION [None]
